FAERS Safety Report 5378088-3 (Version None)
Quarter: 2007Q3

REPORT INFORMATION
  Report Type: 
  Country: None (occurrence: None)
  Receive Date: 20070702
  Receipt Date: 20070702
  Transmission Date: 20080115
  Serious: Yes (Other)
  Sender: FDA-Public Use
  Company Number: None

PATIENT
  Age: 20 Year
  Sex: Female

DRUGS (1)
  1. PROAIR HFA [Suspect]
     Indication: ASTHMA
     Dosage: 1 TO 2 PUFFS EVERY 4 HOURS INHALATION
     Route: 055
     Dates: start: 20070501

REACTIONS (1)
  - DRUG INEFFECTIVE [None]
